FAERS Safety Report 23988145 (Version 8)
Quarter: 2025Q3

REPORT INFORMATION
  Report Type: Spontaneous
  Country: CA (occurrence: CA)
  Receive Date: 20240619
  Receipt Date: 20250826
  Transmission Date: 20251020
  Serious: Yes (Death, Other)
  Sender: Haleon PLC
  Company Number: CA-SANDOZ-SDZ2023CA076080

PATIENT
  Sex: Female

DRUGS (290)
  1. VOLTAREN [Suspect]
     Active Substance: DICLOFENAC SODIUM
     Indication: Product used for unknown indication
  2. VOLTAREN [Suspect]
     Active Substance: DICLOFENAC SODIUM
  3. VOLTAREN [Suspect]
     Active Substance: DICLOFENAC SODIUM
  4. VOLTAREN [Suspect]
     Active Substance: DICLOFENAC SODIUM
  5. VOLTAREN [Suspect]
     Active Substance: DICLOFENAC SODIUM
  6. VOLTAREN [Suspect]
     Active Substance: DICLOFENAC SODIUM
  7. OXYCODONE AND ACETAMINOPHEN [Suspect]
     Active Substance: ACETAMINOPHEN\OXYCODONE HYDROCHLORIDE
     Indication: Product used for unknown indication
  8. OXYCODONE AND ACETAMINOPHEN [Suspect]
     Active Substance: ACETAMINOPHEN\OXYCODONE HYDROCHLORIDE
  9. PREGABALIN [Suspect]
     Active Substance: PREGABALIN
     Indication: Product used for unknown indication
  10. CORTISONE [Suspect]
     Active Substance: CORTISONE
     Indication: Product used for unknown indication
  11. CHLORHEXIDINE [Suspect]
     Active Substance: CHLORHEXIDINE
     Indication: Product used for unknown indication
  12. CLOTRIMAZOLE\HYDROCORTISONE [Suspect]
     Active Substance: CLOTRIMAZOLE\HYDROCORTISONE
     Indication: Product used for unknown indication
  13. CLOTRIMAZOLE\HYDROCORTISONE [Suspect]
     Active Substance: CLOTRIMAZOLE\HYDROCORTISONE
     Dosage: 10 MG, QD
     Route: 050
  14. CLOTRIMAZOLE\HYDROCORTISONE [Suspect]
     Active Substance: CLOTRIMAZOLE\HYDROCORTISONE
     Route: 050
  15. CLOTRIMAZOLE\HYDROCORTISONE [Suspect]
     Active Substance: CLOTRIMAZOLE\HYDROCORTISONE
  16. HYDROCORTISONE ACETATE [Suspect]
     Active Substance: HYDROCORTISONE ACETATE
     Indication: Product used for unknown indication
  17. CHLORPHENIRAMINE MALEATE [Suspect]
     Active Substance: CHLORPHENIRAMINE MALEATE
     Indication: Product used for unknown indication
  18. CHLORPHENIRAMINE MALEATE [Suspect]
     Active Substance: CHLORPHENIRAMINE MALEATE
  19. CHLORPHENIRAMINE MALEATE [Suspect]
     Active Substance: CHLORPHENIRAMINE MALEATE
     Dosage: 10 MG, QD
     Route: 050
  20. CHLORPHENIRAMINE MALEATE [Suspect]
     Active Substance: CHLORPHENIRAMINE MALEATE
     Route: 050
  21. HYDROCORTISONE SODIUM SUCCINATE [Suspect]
     Active Substance: HYDROCORTISONE SODIUM SUCCINATE
     Indication: Product used for unknown indication
  22. HYDROCORTISONE SODIUM SUCCINATE [Suspect]
     Active Substance: HYDROCORTISONE SODIUM SUCCINATE
     Route: 048
  23. PANADOL [Suspect]
     Active Substance: ACETAMINOPHEN
     Indication: Product used for unknown indication
  24. PANADOL [Suspect]
     Active Substance: ACETAMINOPHEN
  25. ALENDRONATE SODIUM [Suspect]
     Active Substance: ALENDRONATE SODIUM
     Indication: Product used for unknown indication
  26. VITAMIN D3 [Suspect]
     Active Substance: CHOLECALCIFEROL
     Indication: Product used for unknown indication
     Route: 058
  27. VITAMIN D3 [Suspect]
     Active Substance: CHOLECALCIFEROL
     Route: 016
  28. VITAMIN D3 [Suspect]
     Active Substance: CHOLECALCIFEROL
  29. SODIUM FLUORIDE [Suspect]
     Active Substance: SODIUM FLUORIDE
     Indication: Product used for unknown indication
  30. DICLOFENAC [Suspect]
     Active Substance: DICLOFENAC
     Indication: Product used for unknown indication
  31. DICLOFENAC [Suspect]
     Active Substance: DICLOFENAC
  32. MESALAMINE [Suspect]
     Active Substance: MESALAMINE
     Indication: Product used for unknown indication
  33. CALTRATE [Suspect]
     Active Substance: CALCIUM CARBONATE
     Indication: Product used for unknown indication
  34. ACETAMINOPHEN [Suspect]
     Active Substance: ACETAMINOPHEN
     Indication: Product used for unknown indication
  35. ACETAMINOPHEN [Suspect]
     Active Substance: ACETAMINOPHEN
  36. ADALIMUMAB [Suspect]
     Active Substance: ADALIMUMAB
     Indication: Product used for unknown indication
  37. ADALIMUMAB [Suspect]
     Active Substance: ADALIMUMAB
  38. ADALIMUMAB [Suspect]
     Active Substance: ADALIMUMAB
  39. ADALIMUMAB [Suspect]
     Active Substance: ADALIMUMAB
  40. ERELZI [Suspect]
     Active Substance: ETANERCEPT-SZZS
     Indication: Product used for unknown indication
     Route: 058
  41. ERELZI [Suspect]
     Active Substance: ETANERCEPT-SZZS
     Route: 058
  42. APREMILAST [Suspect]
     Active Substance: APREMILAST
     Indication: Product used for unknown indication
     Dosage: (1 EVERY 1 DAYS)
  43. METHOTREXATE [Suspect]
     Active Substance: METHOTREXATE
     Indication: Product used for unknown indication
     Route: 048
  44. METHOTREXATE [Suspect]
     Active Substance: METHOTREXATE
     Route: 048
  45. METHOTREXATE [Suspect]
     Active Substance: METHOTREXATE
  46. METHOTREXATE [Suspect]
     Active Substance: METHOTREXATE
     Dosage: (1 EVERY 1 DAYS)
     Route: 048
  47. METHOTREXATE [Suspect]
     Active Substance: METHOTREXATE
     Route: 048
  48. METHOTREXATE [Suspect]
     Active Substance: METHOTREXATE
     Route: 048
  49. METHOTREXATE [Suspect]
     Active Substance: METHOTREXATE
     Dosage: (1 EVERY 1 DAYS)
     Route: 058
  50. METHOTREXATE [Suspect]
     Active Substance: METHOTREXATE
  51. METHOTREXATE [Suspect]
     Active Substance: METHOTREXATE
     Dosage: (1 EVERY 1 DAYS)
     Route: 048
  52. METHOTREXATE [Suspect]
     Active Substance: METHOTREXATE
  53. METHOTREXATE [Suspect]
     Active Substance: METHOTREXATE
     Route: 048
  54. METHOTREXATE [Suspect]
     Active Substance: METHOTREXATE
     Route: 058
  55. METHOTREXATE [Suspect]
     Active Substance: METHOTREXATE
  56. METHOTREXATE [Suspect]
     Active Substance: METHOTREXATE
     Route: 048
  57. METHOTREXATE [Suspect]
     Active Substance: METHOTREXATE
     Dosage: (1 EVERY 1DAYS)
  58. METHOTREXATE [Suspect]
     Active Substance: METHOTREXATE
  59. METHOTREXATE [Suspect]
     Active Substance: METHOTREXATE
     Route: 048
  60. METHOTREXATE [Suspect]
     Active Substance: METHOTREXATE
     Route: 048
  61. CLONIDINE HYDROCHLORIDE [Suspect]
     Active Substance: CLONIDINE HYDROCHLORIDE
     Indication: Product used for unknown indication
  62. CHOLECALCIFEROL [Suspect]
     Active Substance: CHOLECALCIFEROL
     Indication: Product used for unknown indication
  63. CHOLECALCIFEROL [Suspect]
     Active Substance: CHOLECALCIFEROL
  64. CHOLECALCIFEROL [Suspect]
     Active Substance: CHOLECALCIFEROL
     Route: 058
  65. DILTIAZEM HYDROCHLORIDE [Suspect]
     Active Substance: DILTIAZEM HYDROCHLORIDE
     Indication: Product used for unknown indication
  66. FOLIC ACID [Suspect]
     Active Substance: FOLIC ACID
     Indication: Product used for unknown indication
     Route: 048
  67. FOLIC ACID [Suspect]
     Active Substance: FOLIC ACID
     Route: 048
  68. FOLIC ACID [Suspect]
     Active Substance: FOLIC ACID
     Route: 048
  69. FOLIC ACID [Suspect]
     Active Substance: FOLIC ACID
  70. FOLIC ACID [Suspect]
     Active Substance: FOLIC ACID
  71. FOLIC ACID [Suspect]
     Active Substance: FOLIC ACID
  72. FOLIC ACID [Suspect]
     Active Substance: FOLIC ACID
  73. FOLIC ACID [Suspect]
     Active Substance: FOLIC ACID
  74. FOLIC ACID [Suspect]
     Active Substance: FOLIC ACID
     Dosage: (1 EVERY 1 DAYS)
     Route: 048
  75. FOLIC ACID [Suspect]
     Active Substance: FOLIC ACID
  76. MORPHINE SULFATE [Suspect]
     Active Substance: MORPHINE SULFATE
     Indication: Product used for unknown indication
  77. AZATHIOPRINE [Suspect]
     Active Substance: AZATHIOPRINE
     Indication: Product used for unknown indication
  78. INFLIXIMAB [Suspect]
     Active Substance: INFLIXIMAB
     Indication: Product used for unknown indication
  79. INFLIXIMAB [Suspect]
     Active Substance: INFLIXIMAB
  80. ABATACEPT [Suspect]
     Active Substance: ABATACEPT
     Indication: Product used for unknown indication
  81. BENZOYLPAS CALCIUM ANHYDROUS [Suspect]
     Active Substance: BENZOYLPAS CALCIUM ANHYDROUS
     Indication: Product used for unknown indication
  82. CALCIUM CITRATE [Suspect]
     Active Substance: CALCIUM CITRATE
     Indication: Product used for unknown indication
  83. CALCIUM GLUBIONATE [Suspect]
     Active Substance: CALCIUM GLUBIONATE
     Indication: Product used for unknown indication
  84. CERTOLIZUMAB PEGOL [Suspect]
     Active Substance: CERTOLIZUMAB PEGOL
     Indication: Product used for unknown indication
     Route: 058
  85. CIMZIA [Suspect]
     Active Substance: CERTOLIZUMAB PEGOL
     Indication: Product used for unknown indication
  86. CIMZIA [Suspect]
     Active Substance: CERTOLIZUMAB PEGOL
  87. CIMZIA [Suspect]
     Active Substance: CERTOLIZUMAB PEGOL
     Dosage: (1 EVERY 1 DAYS), SOLUTION FOR INJECTION, SUBCUTANEOUS
  88. CORTISONE ACETATE [Suspect]
     Active Substance: CORTISONE ACETATE
     Indication: Product used for unknown indication
  89. CORTISONE ACETATE [Suspect]
     Active Substance: CORTISONE ACETATE
  90. DESOXIMETASONE [Suspect]
     Active Substance: DESOXIMETASONE
     Indication: Product used for unknown indication
     Route: 048
  91. DESOXIMETASONE [Suspect]
     Active Substance: DESOXIMETASONE
  92. DESOXIMETASONE [Suspect]
     Active Substance: DESOXIMETASONE
  93. SULFISOMIDINE [Suspect]
     Active Substance: SULFISOMIDINE
     Indication: Product used for unknown indication
  94. ENBREL [Suspect]
     Active Substance: ETANERCEPT
     Indication: Product used for unknown indication
  95. ENBREL [Suspect]
     Active Substance: ETANERCEPT
     Dosage: (1 EVERY 1 WEEKS), SUBCUTANEOUS
  96. ENBREL [Suspect]
     Active Substance: ETANERCEPT
     Dosage: (1 EVERY 1 WEEKS), SUBCUTANEOUS
  97. ENBREL [Suspect]
     Active Substance: ETANERCEPT
     Dosage: (1 EVERY 1 DAYS), SUBCUTANEOUS
  98. ENTYVIO [Suspect]
     Active Substance: VEDOLIZUMAB
     Indication: Product used for unknown indication
  99. FRAMYCETIN SULFATE [Suspect]
     Active Substance: FRAMYCETIN SULFATE
     Indication: Product used for unknown indication
  100. GOLIMUMAB [Suspect]
     Active Substance: GOLIMUMAB
     Indication: Product used for unknown indication
  101. GRAMICIDIN [Suspect]
     Active Substance: GRAMICIDIN
     Indication: Product used for unknown indication
  102. HUMIRA [Suspect]
     Active Substance: ADALIMUMAB
     Indication: Product used for unknown indication
     Route: 058
  103. HUMIRA [Suspect]
     Active Substance: ADALIMUMAB
     Route: 058
  104. HUMIRA [Suspect]
     Active Substance: ADALIMUMAB
     Route: 058
  105. HUMIRA [Suspect]
     Active Substance: ADALIMUMAB
     Route: 058
  106. HYDROCORTISONE [Suspect]
     Active Substance: HYDROCORTISONE
     Indication: Product used for unknown indication
  107. HYDROCORTISONE [Suspect]
     Active Substance: HYDROCORTISONE
  108. HYDROCORTISONE [Suspect]
     Active Substance: HYDROCORTISONE
  109. DOXYCYCLINE HYCLATE [Suspect]
     Active Substance: DOXYCYCLINE HYCLATE
     Indication: Product used for unknown indication
  110. HYDROXYCHLOROQUINE [Suspect]
     Active Substance: HYDROXYCHLOROQUINE
     Indication: Product used for unknown indication
     Route: 048
  111. HYDROXYCHLOROQUINE [Suspect]
     Active Substance: HYDROXYCHLOROQUINE
     Route: 048
  112. HYDROXYCHLOROQUINE [Suspect]
     Active Substance: HYDROXYCHLOROQUINE
     Route: 048
  113. HYDROXYCHLOROQUINE [Suspect]
     Active Substance: HYDROXYCHLOROQUINE
     Route: 058
  114. HYDROXYCHLOROQUINE SULFATE [Suspect]
     Active Substance: HYDROXYCHLOROQUINE SULFATE
     Indication: Product used for unknown indication
     Route: 048
  115. HYDROXYCHLOROQUINE SULFATE [Suspect]
     Active Substance: HYDROXYCHLOROQUINE SULFATE
     Dosage: OROPHARINGEAL
  116. HYDROXYCHLOROQUINE SULFATE [Suspect]
     Active Substance: HYDROXYCHLOROQUINE SULFATE
     Route: 048
  117. HYDROXYCHLOROQUINE SULFATE [Suspect]
     Active Substance: HYDROXYCHLOROQUINE SULFATE
     Route: 048
  118. HYDROXYCHLOROQUINE SULFATE [Suspect]
     Active Substance: HYDROXYCHLOROQUINE SULFATE
     Route: 048
  119. HYDROXYCHLOROQUINE SULFATE [Suspect]
     Active Substance: HYDROXYCHLOROQUINE SULFATE
  120. HYDROXYCHLOROQUINE SULFATE [Suspect]
     Active Substance: HYDROXYCHLOROQUINE SULFATE
  121. HYDROXYCHLOROQUINE SULFATE [Suspect]
     Active Substance: HYDROXYCHLOROQUINE SULFATE
  122. ISOPROPYL ALCOHOL [Suspect]
     Active Substance: ISOPROPYL ALCOHOL
     Indication: Product used for unknown indication
     Route: 048
  123. LYRICA [Suspect]
     Active Substance: PREGABALIN
     Indication: Product used for unknown indication
  124. METHYLPREDNISOLONE SODIUM SUCCINATE [Suspect]
     Active Substance: METHYLPREDNISOLONE SODIUM SUCCINATE
     Indication: Product used for unknown indication
     Route: 048
  125. NAPROXEN SODIUM [Suspect]
     Active Substance: NAPROXEN SODIUM
     Indication: Product used for unknown indication
  126. NAPROXEN SODIUM [Suspect]
     Active Substance: NAPROXEN SODIUM
  127. NITROFURAZONE [Suspect]
     Active Substance: NITROFURAZONE
     Indication: Product used for unknown indication
     Route: 048
  128. NITROFURAZONE [Suspect]
     Active Substance: NITROFURAZONE
     Route: 048
  129. ORENCIA [Suspect]
     Active Substance: ABATACEPT
     Indication: Product used for unknown indication
  130. ORENCIA [Suspect]
     Active Substance: ABATACEPT
     Dosage: INTRAVENOUS (NOT OTHERWISE SPECIFIED)
  131. ORENCIA [Suspect]
     Active Substance: ABATACEPT
  132. ORENCIA [Suspect]
     Active Substance: ABATACEPT
  133. ORENCIA [Suspect]
     Active Substance: ABATACEPT
  134. ORENCIA [Suspect]
     Active Substance: ABATACEPT
     Dosage: SUBCUTANEOUS
  135. ORENCIA [Suspect]
     Active Substance: ABATACEPT
  136. ORENCIA [Suspect]
     Active Substance: ABATACEPT
  137. ORENCIA [Suspect]
     Active Substance: ABATACEPT
  138. ORENCIA [Suspect]
     Active Substance: ABATACEPT
  139. ORENCIA [Suspect]
     Active Substance: ABATACEPT
     Route: 050
  140. ORENCIA [Suspect]
     Active Substance: ABATACEPT
  141. ORENCIA [Suspect]
     Active Substance: ABATACEPT
     Route: 050
  142. ORENCIA [Suspect]
     Active Substance: ABATACEPT
  143. ORENCIA [Suspect]
     Active Substance: ABATACEPT
     Route: 050
  144. ORENCIA [Suspect]
     Active Substance: ABATACEPT
     Route: 050
  145. OTEZLA [Suspect]
     Active Substance: APREMILAST
     Indication: Product used for unknown indication
     Route: 048
  146. OTEZLA [Suspect]
     Active Substance: APREMILAST
  147. OTEZLA [Suspect]
     Active Substance: APREMILAST
     Route: 048
  148. OTEZLA [Suspect]
     Active Substance: APREMILAST
  149. OTEZLA [Suspect]
     Active Substance: APREMILAST
  150. OXYCODONE TEREPHTHALATE [Suspect]
     Active Substance: OXYCODONE TEREPHTHALATE
     Indication: Product used for unknown indication
  151. PARA-AMINOSALICYLIC ACID [Suspect]
     Active Substance: AMINOSALICYLIC ACID
     Indication: Product used for unknown indication
  152. PHTHALYLSULFATHIAZOLE [Suspect]
     Active Substance: PHTHALYLSULFATHIAZOLE
     Indication: Product used for unknown indication
     Route: 048
  153. PHTHALYLSULFATHIAZOLE [Suspect]
     Active Substance: PHTHALYLSULFATHIAZOLE
     Route: 048
  154. PHTHALYLSULFATHIAZOLE [Suspect]
     Active Substance: PHTHALYLSULFATHIAZOLE
     Route: 058
  155. PHTHALYLSULFATHIAZOLE [Suspect]
     Active Substance: PHTHALYLSULFATHIAZOLE
     Route: 048
  156. PHTHALYLSULFATHIAZOLE [Suspect]
     Active Substance: PHTHALYLSULFATHIAZOLE
  157. PHTHALYLSULFATHIAZOLE [Suspect]
     Active Substance: PHTHALYLSULFATHIAZOLE
     Dosage: ORAL
  158. PHTHALYLSULFATHIAZOLE [Suspect]
     Active Substance: PHTHALYLSULFATHIAZOLE
     Dosage: ORAL
  159. PHTHALYLSULFATHIAZOLE [Suspect]
     Active Substance: PHTHALYLSULFATHIAZOLE
  160. PREDNISONE [Suspect]
     Active Substance: PREDNISONE
     Indication: Product used for unknown indication
  161. PREDNISONE [Suspect]
     Active Substance: PREDNISONE
     Route: 048
  162. PREDNISONE [Suspect]
     Active Substance: PREDNISONE
  163. PREDNISONE [Suspect]
     Active Substance: PREDNISONE
     Route: 048
  164. PREDNISONE [Suspect]
     Active Substance: PREDNISONE
     Route: 048
  165. PREDNISONE [Suspect]
     Active Substance: PREDNISONE
     Route: 048
  166. PREDNISONE [Suspect]
     Active Substance: PREDNISONE
     Route: 048
  167. PSEUDOEPHEDRINE [Suspect]
     Active Substance: PSEUDOEPHEDRINE
     Indication: Product used for unknown indication
  168. CLOTRIMAZOLE\HYDROCORTISONE [Suspect]
     Active Substance: CLOTRIMAZOLE\HYDROCORTISONE
     Indication: Product used for unknown indication
  169. CLOTRIMAZOLE\HYDROCORTISONE [Suspect]
     Active Substance: CLOTRIMAZOLE\HYDROCORTISONE
     Route: 048
  170. CLOTRIMAZOLE\HYDROCORTISONE [Suspect]
     Active Substance: CLOTRIMAZOLE\HYDROCORTISONE
     Route: 048
  171. CLOTRIMAZOLE\HYDROCORTISONE [Suspect]
     Active Substance: CLOTRIMAZOLE\HYDROCORTISONE
  172. SALICYLIC ACID [Suspect]
     Active Substance: SALICYLIC ACID
     Indication: Product used for unknown indication
  173. SULFASALAZINE [Suspect]
     Active Substance: SULFASALAZINE
     Indication: Product used for unknown indication
     Route: 058
  174. SULFASALAZINE [Suspect]
     Active Substance: SULFASALAZINE
     Route: 058
  175. SULFASALAZINE [Suspect]
     Active Substance: SULFASALAZINE
     Route: 058
  176. SULFASALAZINE [Suspect]
     Active Substance: SULFASALAZINE
     Route: 058
  177. SULFASALAZINE [Suspect]
     Active Substance: SULFASALAZINE
     Route: 058
  178. SULFASALAZINE [Suspect]
     Active Substance: SULFASALAZINE
     Route: 058
  179. SULFASALAZINE [Suspect]
     Active Substance: SULFASALAZINE
     Route: 048
  180. THYMOL [Suspect]
     Active Substance: THYMOL
     Indication: Product used for unknown indication
     Route: 048
  181. THYMOL [Suspect]
     Active Substance: THYMOL
     Route: 048
  182. TOCILIZUMAB [Suspect]
     Active Substance: TOCILIZUMAB
     Indication: Product used for unknown indication
     Route: 048
  183. TOCILIZUMAB [Suspect]
     Active Substance: TOCILIZUMAB
     Route: 058
  184. TOCILIZUMAB [Suspect]
     Active Substance: TOCILIZUMAB
     Route: 058
  185. TOCILIZUMAB [Suspect]
     Active Substance: TOCILIZUMAB
  186. TOCILIZUMAB [Suspect]
     Active Substance: TOCILIZUMAB
  187. TOCILIZUMAB [Suspect]
     Active Substance: TOCILIZUMAB
  188. TOCILIZUMAB [Suspect]
     Active Substance: TOCILIZUMAB
  189. TOCILIZUMAB [Suspect]
     Active Substance: TOCILIZUMAB
  190. TOCILIZUMAB [Suspect]
     Active Substance: TOCILIZUMAB
  191. TOCILIZUMAB [Suspect]
     Active Substance: TOCILIZUMAB
     Dosage: INTRAVENOUS (NOT OTHERWISE SPECIFIED)
  192. TOCILIZUMAB [Suspect]
     Active Substance: TOCILIZUMAB
     Route: 058
  193. TOCILIZUMAB [Suspect]
     Active Substance: TOCILIZUMAB
     Route: 050
  194. TOCILIZUMAB [Suspect]
     Active Substance: TOCILIZUMAB
     Route: 050
  195. TOCILIZUMAB [Suspect]
     Active Substance: TOCILIZUMAB
     Route: 050
  196. TOCILIZUMAB [Suspect]
     Active Substance: TOCILIZUMAB
  197. TOFACITINIB CITRATE [Suspect]
     Active Substance: TOFACITINIB CITRATE
     Indication: Product used for unknown indication
  198. TRAMADOL HYDROCHLORIDE [Suspect]
     Active Substance: TRAMADOL HYDROCHLORIDE
     Indication: Product used for unknown indication
  199. TRIAMCINOLONE ACETONIDE [Suspect]
     Active Substance: TRIAMCINOLONE ACETONIDE
     Indication: Product used for unknown indication
  200. TRICLOSAN [Suspect]
     Active Substance: TRICLOSAN
     Indication: Product used for unknown indication
  201. SULFAMETHOXAZOLE\TRIMETHOPRIM [Suspect]
     Active Substance: SULFAMETHOXAZOLE\TRIMETHOPRIM
     Indication: Product used for unknown indication
  202. SULFAMETHOXAZOLE\TRIMETHOPRIM [Suspect]
     Active Substance: SULFAMETHOXAZOLE\TRIMETHOPRIM
  203. TYROTHRICIN [Suspect]
     Active Substance: TYROTHRICIN
     Indication: Product used for unknown indication
  204. TYROTHRICIN [Suspect]
     Active Substance: TYROTHRICIN
  205. USTEKINUMAB [Suspect]
     Active Substance: USTEKINUMAB
     Indication: Product used for unknown indication
  206. XELJANZ [Suspect]
     Active Substance: TOFACITINIB CITRATE
     Indication: Product used for unknown indication
  207. XELJANZ [Suspect]
     Active Substance: TOFACITINIB CITRATE
     Route: 048
  208. ALENDRONATE [Suspect]
     Active Substance: ALENDRONATE SODIUM
     Indication: Product used for unknown indication
  209. MYCOPHENOLATE MOFETIL [Suspect]
     Active Substance: MYCOPHENOLATE MOFETIL
     Indication: Product used for unknown indication
  210. CELECOXIB [Suspect]
     Active Substance: CELECOXIB
     Indication: Product used for unknown indication
     Route: 058
  211. CELECOXIB [Suspect]
     Active Substance: CELECOXIB
     Dosage: (1 EVERY 1 DAYS)
  212. CELECOXIB [Suspect]
     Active Substance: CELECOXIB
  213. CELECOXIB [Suspect]
     Active Substance: CELECOXIB
     Dosage: 2 DOSAGE FORM, QD (1 EVERY 1 DAYS) (CAPSULE, HARD)
     Route: 048
  214. CELECOXIB [Suspect]
     Active Substance: CELECOXIB
     Dosage: UNK, QD (1 UNK)
  215. CELECOXIB [Suspect]
     Active Substance: CELECOXIB
     Dosage: 1 DOSAGE FORM, QD (1 EVERY 1 DAYS) (CAPSULE, HARD)
     Route: 050
  216. CELECOXIB [Suspect]
     Active Substance: CELECOXIB
     Route: 050
  217. QUETIAPINE [Suspect]
     Active Substance: QUETIAPINE
     Indication: Product used for unknown indication
  218. DIPHENHYDRAMINE HYDROCHLORIDE [Suspect]
     Active Substance: DIPHENHYDRAMINE HYDROCHLORIDE
     Indication: Product used for unknown indication
  219. CETIRIZINE [Suspect]
     Active Substance: CETIRIZINE HYDROCHLORIDE
     Indication: Product used for unknown indication
  220. CETIRIZINE [Suspect]
     Active Substance: CETIRIZINE HYDROCHLORIDE
  221. CETIRIZINE [Suspect]
     Active Substance: CETIRIZINE HYDROCHLORIDE
     Route: 048
  222. CETIRIZINE [Suspect]
     Active Substance: CETIRIZINE HYDROCHLORIDE
     Dosage: (1 EVERY 1 DAYS)
     Route: 048
  223. DICLOFENAC POTASSIUM [Suspect]
     Active Substance: DICLOFENAC POTASSIUM
     Indication: Product used for unknown indication
  224. DICLOFENAC POTASSIUM [Suspect]
     Active Substance: DICLOFENAC POTASSIUM
  225. CHLORHEXIDINE GLUCONATE\ISOPROPYL ALCOHOL [Suspect]
     Active Substance: CHLORHEXIDINE GLUCONATE\ISOPROPYL ALCOHOL
     Indication: Product used for unknown indication
  226. CHLORHEXIDINE GLUCONATE\ISOPROPYL ALCOHOL [Suspect]
     Active Substance: CHLORHEXIDINE GLUCONATE\ISOPROPYL ALCOHOL
     Route: 050
  227. TUMS ULTRA [Suspect]
     Active Substance: CALCIUM CARBONATE
     Indication: Product used for unknown indication
  228. TUMS ULTRA [Suspect]
     Active Substance: CALCIUM CARBONATE
  229. CHLORHEXIDINE GLUCONATE [Suspect]
     Active Substance: CHLORHEXIDINE GLUCONATE
     Indication: Product used for unknown indication
  230. CELECOXIB [Suspect]
     Active Substance: CELECOXIB
     Indication: Product used for unknown indication
  231. DICLOFENAC SODIUM [Suspect]
     Active Substance: DICLOFENAC SODIUM
     Indication: Product used for unknown indication
  232. DICLOFENAC SODIUM [Suspect]
     Active Substance: DICLOFENAC SODIUM
  233. DICLOFENAC SODIUM [Suspect]
     Active Substance: DICLOFENAC SODIUM
  234. DICLOFENAC SODIUM [Suspect]
     Active Substance: DICLOFENAC SODIUM
  235. DICLOFENAC SODIUM [Suspect]
     Active Substance: DICLOFENAC SODIUM
  236. DICLOFENAC SODIUM [Suspect]
     Active Substance: DICLOFENAC SODIUM
     Route: 058
  237. DICLOFENAC SODIUM [Suspect]
     Active Substance: DICLOFENAC SODIUM
     Route: 050
  238. DICLOFENAC SODIUM [Suspect]
     Active Substance: DICLOFENAC SODIUM
  239. PANTOPRAZOLE SODIUM ANHYDROUS [Suspect]
     Active Substance: PANTOPRAZOLE SODIUM ANHYDROUS
     Indication: Product used for unknown indication
  240. PANTOPRAZOLE SODIUM ANHYDROUS [Suspect]
     Active Substance: PANTOPRAZOLE SODIUM ANHYDROUS
  241. IODINE [Suspect]
     Active Substance: IODINE
     Indication: Product used for unknown indication
  242. IODINE [Suspect]
     Active Substance: IODINE
  243. IODINE [Suspect]
     Active Substance: IODINE
  244. IODINE [Suspect]
     Active Substance: IODINE
  245. IODINE [Suspect]
     Active Substance: IODINE
  246. IODINE [Suspect]
     Active Substance: IODINE
  247. AZATHIOPRINE SODIUM [Suspect]
     Active Substance: AZATHIOPRINE SODIUM
     Indication: Product used for unknown indication
  248. CELECOXIB [Suspect]
     Active Substance: CELECOXIB
     Indication: Product used for unknown indication
  249. ACETAMINOPHEN [Suspect]
     Active Substance: ACETAMINOPHEN
     Indication: Product used for unknown indication
  250. ACETAMINOPHEN [Suspect]
     Active Substance: ACETAMINOPHEN
  251. CLOTRIMAZOLE [Suspect]
     Active Substance: CLOTRIMAZOLE
     Indication: Product used for unknown indication
  252. CLOTRIMAZOLE [Suspect]
     Active Substance: CLOTRIMAZOLE
     Route: 048
  253. CLOTRIMAZOLE [Suspect]
     Active Substance: CLOTRIMAZOLE
     Route: 048
  254. CLOTRIMAZOLE [Suspect]
     Active Substance: CLOTRIMAZOLE
  255. CLOTRIMAZOLE [Suspect]
     Active Substance: CLOTRIMAZOLE
     Route: 050
  256. CLOTRIMAZOLE [Suspect]
     Active Substance: CLOTRIMAZOLE
     Dosage: 10 MG, QD
     Route: 050
  257. CLOTRIMAZOLE [Suspect]
     Active Substance: CLOTRIMAZOLE
     Dosage: 10 MG
  258. CLOTRIMAZOLE [Suspect]
     Active Substance: CLOTRIMAZOLE
     Route: 050
  259. CLOTRIMAZOLE [Suspect]
     Active Substance: CLOTRIMAZOLE
     Route: 050
  260. CLOTRIMAZOLE [Suspect]
     Active Substance: CLOTRIMAZOLE
  261. CLOTRIMAZOLE [Suspect]
     Active Substance: CLOTRIMAZOLE
     Route: 050
  262. CLOTRIMAZOLE [Suspect]
     Active Substance: CLOTRIMAZOLE
     Route: 050
  263. CONTAC [Suspect]
     Active Substance: ACETAMINOPHEN\PHENYLEPHRINE HYDROCHLORIDE
     Indication: Product used for unknown indication
  264. CONTAC [Suspect]
     Active Substance: ACETAMINOPHEN\PHENYLEPHRINE HYDROCHLORIDE
  265. CONTAC [Suspect]
     Active Substance: ACETAMINOPHEN\PHENYLEPHRINE HYDROCHLORIDE
     Route: 048
  266. CONTAC [Suspect]
     Active Substance: ACETAMINOPHEN\PHENYLEPHRINE HYDROCHLORIDE
     Route: 048
  267. CALCIUM CARBONATE\CHOLECALCIFEROL [Suspect]
     Active Substance: CALCIUM CARBONATE\CHOLECALCIFEROL
     Indication: Product used for unknown indication
  268. CALCIUM CARBONATE\CHOLECALCIFEROL [Suspect]
     Active Substance: CALCIUM CARBONATE\CHOLECALCIFEROL
  269. CALCIUM CARBONATE\CHOLECALCIFEROL [Suspect]
     Active Substance: CALCIUM CARBONATE\CHOLECALCIFEROL
  270. CALCIUM CARBONATE\CHOLECALCIFEROL [Suspect]
     Active Substance: CALCIUM CARBONATE\CHOLECALCIFEROL
  271. ACETAMINOPHEN [Suspect]
     Active Substance: ACETAMINOPHEN
     Indication: Product used for unknown indication
  272. ACETAMINOPHEN [Suspect]
     Active Substance: ACETAMINOPHEN
  273. ACETAMINOPHEN [Suspect]
     Active Substance: ACETAMINOPHEN
  274. ACETAMINOPHEN [Suspect]
     Active Substance: ACETAMINOPHEN
  275. ACETAMINOPHEN [Suspect]
     Active Substance: ACETAMINOPHEN
  276. ACETAMINOPHEN [Suspect]
     Active Substance: ACETAMINOPHEN
     Route: 058
  277. ACETAMINOPHEN [Suspect]
     Active Substance: ACETAMINOPHEN
     Route: 050
  278. ACETAMINOPHEN [Suspect]
     Active Substance: ACETAMINOPHEN
  279. OMEPRAZOLE [Suspect]
     Active Substance: OMEPRAZOLE
     Indication: Product used for unknown indication
  280. OMEPRAZOLE [Suspect]
     Active Substance: OMEPRAZOLE
  281. CETIRIZINE HYDROCHLORIDE [Suspect]
     Active Substance: CETIRIZINE HYDROCHLORIDE
     Indication: Product used for unknown indication
  282. CETIRIZINE HYDROCHLORIDE [Suspect]
     Active Substance: CETIRIZINE HYDROCHLORIDE
     Route: 048
  283. CETIRIZINE HYDROCHLORIDE [Suspect]
     Active Substance: CETIRIZINE HYDROCHLORIDE
     Route: 048
  284. CETIRIZINE HYDROCHLORIDE [Suspect]
     Active Substance: CETIRIZINE HYDROCHLORIDE
  285. QUETIAPINE FUMARATE [Suspect]
     Active Substance: QUETIAPINE FUMARATE
     Indication: Product used for unknown indication
  286. CHLORHEXIDINE GLUCONATE [Suspect]
     Active Substance: CHLORHEXIDINE GLUCONATE
     Indication: Product used for unknown indication
  287. CHLORHEXIDINE GLUCONATE [Suspect]
     Active Substance: CHLORHEXIDINE GLUCONATE
  288. BIOFLAVONOIDS [Suspect]
     Active Substance: BIOFLAVONOIDS
     Indication: Product used for unknown indication
  289. DIETARY SUPPLEMENT\HERBALS [Suspect]
     Active Substance: DIETARY SUPPLEMENT\HERBALS
     Indication: Product used for unknown indication
     Route: 048
  290. IMURAN [Suspect]
     Active Substance: AZATHIOPRINE
     Indication: Product used for unknown indication

REACTIONS (129)
  - Drug-induced liver injury [Fatal]
  - Hepatic enzyme increased [Fatal]
  - Hand deformity [Fatal]
  - General physical health deterioration [Fatal]
  - Folliculitis [Fatal]
  - Glossodynia [Fatal]
  - Grip strength decreased [Fatal]
  - Foot deformity [Fatal]
  - Fibromyalgia [Fatal]
  - Hepatic cirrhosis [Fatal]
  - Gait disturbance [Fatal]
  - Gait inability [Fatal]
  - Headache [Fatal]
  - Helicobacter infection [Fatal]
  - Adjustment disorder with depressed mood [Fatal]
  - Bone erosion [Fatal]
  - Dizziness [Fatal]
  - Breast cancer stage III [Fatal]
  - Retinitis [Fatal]
  - Chest pain [Fatal]
  - Joint range of motion decreased [Fatal]
  - Sleep disorder due to general medical condition, insomnia type [Fatal]
  - Liver injury [Fatal]
  - Lower limb fracture [Fatal]
  - Lupus vulgaris [Fatal]
  - Pneumonia [Fatal]
  - Rheumatic fever [Fatal]
  - Spinal fusion surgery [Fatal]
  - Vomiting [Fatal]
  - Blister [Fatal]
  - Asthma [Fatal]
  - Synovitis [Fatal]
  - Prescribed underdose [Fatal]
  - Seronegative arthritis [Fatal]
  - Arthralgia [Fatal]
  - Swollen joint count increased [Fatal]
  - Fatigue [Fatal]
  - Prescribed overdose [Fatal]
  - Sciatica [Fatal]
  - Swelling [Fatal]
  - Oedema peripheral [Fatal]
  - Depression [Fatal]
  - Laryngitis [Fatal]
  - Lupus-like syndrome [Fatal]
  - Injury [Fatal]
  - Systemic lupus erythematosus [Fatal]
  - Road traffic accident [Fatal]
  - Weight increased [Fatal]
  - Rheumatoid arthritis [Fatal]
  - Psoriasis [Fatal]
  - Muscular weakness [Fatal]
  - Tachycardia [Fatal]
  - Irritable bowel syndrome [Fatal]
  - Autoimmune disorder [Fatal]
  - Mobility decreased [Fatal]
  - Pain [Fatal]
  - Confusional state [Fatal]
  - Wound infection [Fatal]
  - Hypercholesterolaemia [Fatal]
  - Weight decreased [Fatal]
  - Peripheral swelling [Fatal]
  - Deep vein thrombosis postoperative [Fatal]
  - Dislocation of vertebra [Fatal]
  - Wound [Fatal]
  - Rheumatoid factor positive [Fatal]
  - Sinusitis [Fatal]
  - Type 2 diabetes mellitus [Fatal]
  - Infusion related reaction [Fatal]
  - Condition aggravated [Fatal]
  - Red blood cell sedimentation rate increased [Fatal]
  - Nasopharyngitis [Fatal]
  - Anti-cyclic citrullinated peptide antibody positive [Fatal]
  - Discomfort [Fatal]
  - Psoriatic arthropathy [Fatal]
  - Walking aid user [Fatal]
  - Pyrexia [Fatal]
  - Abdominal discomfort [Fatal]
  - Anti-cyclic citrullinated peptide antibody [Fatal]
  - Contusion [Fatal]
  - Blood cholesterol increased [Fatal]
  - Memory impairment [Fatal]
  - Pruritus [Fatal]
  - Hypertension [Fatal]
  - Hypoaesthesia [Fatal]
  - Dyspnoea [Fatal]
  - Decreased appetite [Fatal]
  - Alopecia [Fatal]
  - Exostosis [Fatal]
  - Osteoarthritis [Fatal]
  - Crohn^s disease [Fatal]
  - Bronchitis [Fatal]
  - Osteoporosis [Fatal]
  - Nausea [Fatal]
  - Joint stiffness [Fatal]
  - Liver function test increased [Fatal]
  - Joint dislocation [Fatal]
  - Sleep disorder [Fatal]
  - Spondylitis [Fatal]
  - Delirium [Fatal]
  - Wheezing [Fatal]
  - Musculoskeletal stiffness [Fatal]
  - Upper respiratory tract infection [Fatal]
  - Pain in extremity [Fatal]
  - Ear infection [Fatal]
  - Pericarditis [Fatal]
  - Disability [Fatal]
  - Impaired healing [Fatal]
  - Dyspepsia [Fatal]
  - Duodenal ulcer perforation [Fatal]
  - Stomatitis [Fatal]
  - Pemphigus [Fatal]
  - Arthritis [Fatal]
  - Oedema [Fatal]
  - Rash [Fatal]
  - Infection [Fatal]
  - Joint swelling [Fatal]
  - Hypersensitivity [Fatal]
  - Knee arthroplasty [Fatal]
  - Muscle injury [Fatal]
  - Visual impairment [Fatal]
  - Hip arthroplasty [Fatal]
  - Arthropathy [Fatal]
  - Urticaria [Fatal]
  - Loss of personal independence in daily activities [Fatal]
  - C-reactive protein increased [Fatal]
  - Amnesia [Fatal]
  - Pulmonary fibrosis [Fatal]
  - Diarrhoea [Fatal]
  - Anxiety [Fatal]
